FAERS Safety Report 5992370-8 (Version None)
Quarter: 2008Q4

REPORT INFORMATION
  Report Type: 
  Country: None (occurrence: None)
  Receive Date: 20081211
  Receipt Date: 20080515
  Transmission Date: 20090506
  Serious: No
  Sender: FDA-Public Use
  Company Number: US-AMGEN-KDL279780

PATIENT
  Sex: Female

DRUGS (2)
  1. ENBREL [Suspect]
     Indication: JUVENILE ARTHRITIS
     Route: 058
     Dates: start: 20070518
  2. ORAL CONTRACEPTIVE NOS [Concomitant]
     Route: 048

REACTIONS (6)
  - CONJUNCTIVITIS INFECTIVE [None]
  - DRUG INTERACTION [None]
  - ERYTHEMA [None]
  - MIGRAINE [None]
  - PHARYNGITIS STREPTOCOCCAL [None]
  - SINUSITIS [None]
